FAERS Safety Report 5684397-0 (Version None)
Quarter: 2008Q1

REPORT INFORMATION
  Report Type: 
  Country: None (occurrence: None)
  Receive Date: 20080327
  Receipt Date: 20080327
  Transmission Date: 20080703
  Serious: Yes (Hospitalization)
  Sender: FDA-Public Use
  Company Number: None

PATIENT
  Sex: Male
  Weight: 87.9 kg

DRUGS (1)
  1. MELPHALAN [Suspect]
     Dosage: 380 MG
     Dates: end: 20080108

REACTIONS (5)
  - ARTHRALGIA [None]
  - HERPES ZOSTER [None]
  - HYPOTENSION [None]
  - INSOMNIA [None]
  - PAIN IN EXTREMITY [None]
